FAERS Safety Report 19382277 (Version 1)
Quarter: 2021Q2

REPORT INFORMATION
  Report Type: Spontaneous
  Country: US (occurrence: US)
  Receive Date: 20210607
  Receipt Date: 20210607
  Transmission Date: 20210717
  Serious: No
  Sender: FDA-Public Use
  Company Number: US-BAYER-2021-153323

PATIENT
  Sex: Female

DRUGS (1)
  1. CLIMARA [Suspect]
     Active Substance: ESTRADIOL
     Dosage: 4 TIMES A WEEK
     Route: 062

REACTIONS (3)
  - Application site erythema [None]
  - Inappropriate schedule of product administration [None]
  - Application site irritation [None]
